FAERS Safety Report 25690423 (Version 1)
Quarter: 2025Q3

REPORT INFORMATION
  Report Type: Spontaneous
  Country: US (occurrence: US)
  Receive Date: 20250818
  Receipt Date: 20250818
  Transmission Date: 20251021
  Serious: Yes (Other)
  Sender: SANOFI AVENTIS
  Company Number: US-SA-2025SA244498

PATIENT
  Age: 35 Year
  Sex: Female
  Weight: 74.84 kg

DRUGS (6)
  1. DUPIXENT [Suspect]
     Active Substance: DUPILUMAB
     Indication: Eosinophilic oesophagitis
     Dosage: 300 MG, QOW
     Route: 058
  2. DUPIXENT [Suspect]
     Active Substance: DUPILUMAB
     Indication: Dermatitis atopic
  3. IRON [Concomitant]
     Active Substance: IRON
  4. B12 active [Concomitant]
  5. VITAMIN D3 [Concomitant]
     Active Substance: CHOLECALCIFEROL
  6. VENCLEXTA [Concomitant]
     Active Substance: VENETOCLAX

REACTIONS (2)
  - Neoplasm malignant [Unknown]
  - White blood cell count abnormal [Unknown]
